FAERS Safety Report 5914040-4 (Version None)
Quarter: 2008Q4

REPORT INFORMATION
  Report Type: 
  Country: None (occurrence: None)
  Receive Date: 20081009
  Receipt Date: 20081002
  Transmission Date: 20090506
  Serious: Yes (Other)
  Sender: FDA-Public Use
  Company Number: MX-ELI_LILLY_AND_COMPANY-MX200810000916

PATIENT
  Age: 50 Year
  Sex: Female
  Weight: 56 kg

DRUGS (7)
  1. HUMALOG [Suspect]
     Dosage: UNK UNK, 3/D
     Route: 058
  2. NORVASC [Concomitant]
     Dosage: 5 MG, EACH MORNING
     Route: 065
  3. CRESTOR [Concomitant]
     Dosage: 10 MG, DAILY (1/D)
     Route: 065
  4. ATACAND [Concomitant]
     Dosage: 8 MG, DAILY (1/D)
     Route: 065
  5. LASIX [Concomitant]
     Indication: OEDEMA
     Dosage: 40 MG, EACH MORNING
     Route: 065
  6. INSULIN [Concomitant]
     Dosage: UNK, 3/D
     Route: 065
  7. INSULIN [Concomitant]
     Dosage: UNK, UNKNOWN
     Route: 065
     Dates: start: 19880101

REACTIONS (5)
  - AGGRESSION [None]
  - AMNESIA [None]
  - BLOOD GLUCOSE INCREASED [None]
  - LOSS OF CONSCIOUSNESS [None]
  - MOOD ALTERED [None]
